FAERS Safety Report 13385624 (Version 2)
Quarter: 2017Q1

REPORT INFORMATION
  Report Type: Spontaneous
  Country: JP (occurrence: JP)
  Receive Date: 20170330
  Receipt Date: 20170330
  Transmission Date: 20170429
  Serious: Yes (Other)
  Sender: FDA-Public Use
  Company Number: JP-PFIZER INC-2017134887

PATIENT
  Age: 60 Year
  Sex: Female

DRUGS (2)
  1. LYRICA [Suspect]
     Active Substance: PREGABALIN
     Indication: TUMOUR PAIN
     Dosage: 450 MG, DAILY
     Route: 048
     Dates: start: 201609, end: 20170320
  2. CYMBALTA [Suspect]
     Active Substance: DULOXETINE HYDROCHLORIDE
     Indication: PAIN
     Dosage: 60 MG, DAILY
     Route: 048
     Dates: start: 201609, end: 20170320

REACTIONS (4)
  - Dizziness [Recovered/Resolved]
  - Intentional product use issue [Unknown]
  - Neoplasm [Unknown]
  - Nightmare [Recovered/Resolved]

NARRATIVE: CASE EVENT DATE: 20170320
